FAERS Safety Report 5148085-1 (Version None)
Quarter: 2006Q4

REPORT INFORMATION
  Report Type: 
  Country: None (occurrence: None)
  Receive Date: 20061110
  Receipt Date: 20061030
  Transmission Date: 20070319
  Serious: Yes (Other)
  Sender: FDA-Public Use
  Company Number: PHBS2006BR16996

PATIENT
  Age: 75 Year
  Sex: Male
  Weight: 68 kg

DRUGS (6)
  1. MONOCORDIL [Concomitant]
     Indication: CARDIAC DISORDER
     Route: 048
  2. DIGOXIN [Concomitant]
     Indication: CARDIAC DISORDER
     Dosage: 25 MG, QD
     Route: 048
  3. FUROSEMIDE [Concomitant]
     Dosage: 20 MG, BID
  4. CARVEDILATE [Concomitant]
     Indication: CARDIAC DISORDER
     Dosage: UNK, QD
     Route: 048
  5. SPIRONOLACTONE [Concomitant]
     Indication: CARDIAC DISORDER
     Dosage: 25 MG/DAY
     Route: 048
  6. SLOW-K [Suspect]
     Dosage: 600 MG, UNK
     Route: 048

REACTIONS (1)
  - WEIGHT DECREASED [None]
